FAERS Safety Report 15139558 (Version 1)
Quarter: 2018Q3

REPORT INFORMATION
  Report Type: Report from Study
  Country: MX (occurrence: MX)
  Receive Date: 20180713
  Receipt Date: 20180713
  Transmission Date: 20181010
  Serious: Yes (Death, Other)
  Sender: FDA-Public Use
  Company Number: MX-UCBSA-2018029690

PATIENT
  Age: 77 Year
  Sex: Male
  Weight: 65 kg

DRUGS (9)
  1. ROTIGOTINE [Suspect]
     Active Substance: ROTIGOTINE
     Dosage: 6 MG, ONCE DAILY (QD)
     Route: 062
     Dates: start: 2014
  2. LEVODOPA [Concomitant]
     Active Substance: LEVODOPA
     Indication: TREMOR
     Dosage: 1 DF, 3X/DAY (TID)
     Dates: start: 2000
  3. BIPERIDEN [Concomitant]
     Active Substance: BIPERIDEN
     Indication: MUSCLE RIGIDITY
     Dosage: 1 DF, ONCE DAILY (QD)
     Dates: start: 2000
  4. BIPERIDEN [Concomitant]
     Active Substance: BIPERIDEN
     Indication: TREMOR
  5. ROTIGOTINE [Suspect]
     Active Substance: ROTIGOTINE
     Indication: PARKINSON^S DISEASE
     Dosage: 2 MG, ONCE DAILY (QD)
     Route: 062
  6. PARACETAMOL [Concomitant]
     Active Substance: ACETAMINOPHEN
     Indication: PAIN
     Dosage: 1 DF, ONCE DAILY (QD)
     Dates: start: 2000
  7. ROTIGOTINE [Suspect]
     Active Substance: ROTIGOTINE
     Dosage: 4 MG, ONCE DAILY (QD)
     Route: 062
  8. ROTIGOTINE [Suspect]
     Active Substance: ROTIGOTINE
     Dosage: 4 MG, ONCE DAILY (QD)
     Route: 062
     Dates: end: 20160906
  9. DICLOFENAC [Concomitant]
     Active Substance: DICLOFENAC
     Indication: PAIN
     Dosage: 1 DF, ONCE DAILY (QD)
     Dates: start: 2000

REACTIONS (3)
  - Body height decreased [Not Recovered/Not Resolved]
  - Tracheal stenosis [Fatal]
  - Parkinson^s disease [Recovered/Resolved]

NARRATIVE: CASE EVENT DATE: 2014
